FAERS Safety Report 16193767 (Version 3)
Quarter: 2019Q2

REPORT INFORMATION
  Report Type: Spontaneous
  Country: IT (occurrence: IT)
  Receive Date: 20190413
  Receipt Date: 20190527
  Transmission Date: 20190711
  Serious: Yes (Hospitalization)
  Sender: FDA-Public Use
  Company Number: IT-TEVA-2019-IT-1036475

PATIENT
  Age: 57 Year
  Sex: Female
  Weight: 62 kg

DRUGS (7)
  1. METOCLOPRAMIDE. [Concomitant]
     Active Substance: METOCLOPRAMIDE
  2. ARIXTRA 7.5 MG/0.6?ML SOLUTION FOR INJECTION, PRE-FILLED SYRINGE [Concomitant]
  3. LASIX [Concomitant]
     Active Substance: FUROSEMIDE
  4. GEMCITABINE HYDROCHLORIDE. [Concomitant]
     Active Substance: GEMCITABINE HYDROCHLORIDE
     Indication: OVARIAN NEOPLASM
     Route: 042
     Dates: start: 20181030, end: 20190325
  5. BISOPROLOLO TEVA 1,25 MG COMPRESSE [Concomitant]
     Active Substance: BISOPROLOL
  6. PANTOPRAZOLO AUROBINDO ITALIA 40 MG COMPRESSE GASTRORESISTENTI [Concomitant]
  7. CISPLATIN. [Suspect]
     Active Substance: CISPLATIN
     Indication: OVARIAN NEOPLASM
     Route: 042
     Dates: start: 20181030, end: 20190325

REACTIONS (5)
  - Rash [Unknown]
  - Hypersensitivity [Unknown]
  - Tachycardia [Unknown]
  - Hyperhidrosis [Unknown]
  - Hypotension [Unknown]

NARRATIVE: CASE EVENT DATE: 20190325
